FAERS Safety Report 6653592-6 (Version None)
Quarter: 2010Q1

REPORT INFORMATION
  Report Type: 
  Country: None (occurrence: None)
  Receive Date: 20100324
  Receipt Date: 20100317
  Transmission Date: 20100710
  Serious: Yes (Other)
  Sender: FDA-Public Use
  Company Number: SPV1-2010-00519

PATIENT
  Age: 69 Year
  Sex: Male

DRUGS (5)
  1. FOSRENOL [Suspect]
     Indication: HYPERPHOSPHATAEMIA
     Dosage: ORAL
     Route: 048
     Dates: start: 20100113, end: 20100303
  2. PLAVIX [Concomitant]
  3. ASPIRIN [Concomitant]
  4. H2 BLOCKER /00397401/(CIMETIDINE) [Concomitant]
  5. PROTON PUMP INHIBITORS [Concomitant]

REACTIONS (1)
  - UPPER GASTROINTESTINAL HAEMORRHAGE [None]
